FAERS Safety Report 15387561 (Version 1)
Quarter: 2018Q3

REPORT INFORMATION
  Report Type: Report from Study
  Country: ZA (occurrence: ZA)
  Receive Date: 20180914
  Receipt Date: 20180914
  Transmission Date: 20181010
  Serious: Yes (Disabling)
  Sender: FDA-Public Use
  Company Number: PHHY2018ZA018284

PATIENT
  Age: 42 Year
  Sex: Male

DRUGS (1)
  1. GILENYA [Suspect]
     Active Substance: FINGOLIMOD HYDROCHLORIDE
     Indication: MULTIPLE SCLEROSIS
     Dosage: 0.5 MG, UNK
     Route: 048
     Dates: start: 20180605

REACTIONS (12)
  - Peripheral coldness [Unknown]
  - Heart rate decreased [Recovered/Resolved]
  - Dyspepsia [Unknown]
  - Eating disorder [Unknown]
  - Abdominal pain upper [Not Recovered/Not Resolved]
  - Weight decreased [Recovering/Resolving]
  - Pancreatic disorder [Recovering/Resolving]
  - Diarrhoea [Unknown]
  - Nausea [Recovering/Resolving]
  - Cholelithiasis [Recovered/Resolved]
  - Acne [Not Recovered/Not Resolved]
  - Gallbladder disorder [Recovering/Resolving]

NARRATIVE: CASE EVENT DATE: 20180605
